FAERS Safety Report 5745571-8 (Version None)
Quarter: 2008Q2

REPORT INFORMATION
  Report Type: 
  Country: None (occurrence: None)
  Receive Date: 20080519
  Receipt Date: 20080214
  Transmission Date: 20081010
  Serious: No
  Sender: FDA-Public Use
  Company Number: TPA2008A00214

PATIENT
  Age: 81 Year
  Sex: Male
  Weight: 83.9154 kg

DRUGS (12)
  1. ROZEREM [Suspect]
     Indication: INSOMNIA
     Dosage: 8 MG, HS, PER ORAL
     Route: 048
     Dates: start: 20080108
  2. ACETAMINOPHEN [Suspect]
     Indication: MUSCLE SPASMS
     Dosage: 500 MG, AS REQUIRED, PER ORAL
     Route: 048
     Dates: end: 20080212
  3. ASPIRIN [Concomitant]
  4. ALFALFA (MEDICAGO SATIVA) [Concomitant]
  5. VITAMIN B COMPLEX (PYRIDOXINE HYDROCHLORIDE, THIAMINE HYDROCHLORIDE, R [Concomitant]
  6. MULTIVITAMIN [Concomitant]
  7. LEVOXYL [Concomitant]
  8. ZOLOFT [Concomitant]
  9. NORVASC [Concomitant]
  10. TOPROL-XL [Concomitant]
  11. CLONAZEPAM [Concomitant]
  12. LAMICTAL [Concomitant]

REACTIONS (4)
  - DRUG INTERACTION [None]
  - HANGOVER [None]
  - SLUGGISHNESS [None]
  - SOMNOLENCE [None]
